FAERS Safety Report 7811841-2 (Version None)
Quarter: 2011Q4

REPORT INFORMATION
  Report Type: 
  Country: None (occurrence: None)
  Receive Date: 20111013
  Receipt Date: 20110929
  Transmission Date: 20120403
  Serious: Yes (Other)
  Sender: FDA-Public Use
  Company Number: GB-MYLANLABS-2011S1019099

PATIENT
  Age: 46 Year
  Sex: Female

DRUGS (3)
  1. QUINIDINE HCL [Concomitant]
     Indication: MYASTHENIC SYNDROME
  2. PYRIDOSTIGMINE BROMIDE [Concomitant]
     Indication: MYASTHENIC SYNDROME
  3. FLUOXETINE [Suspect]
     Indication: MYASTHENIC SYNDROME

REACTIONS (4)
  - OFF LABEL USE [None]
  - HYPOTENSION [None]
  - LETHARGY [None]
  - DRUG INEFFECTIVE FOR UNAPPROVED INDICATION [None]
